FAERS Safety Report 6414137-9 (Version None)
Quarter: 2009Q4

REPORT INFORMATION
  Report Type: 
  Country: None (occurrence: None)
  Receive Date: 20091022
  Receipt Date: 20091022
  Transmission Date: 20100525
  Serious: Yes (Hospitalization)
  Sender: FDA-Public Use
  Company Number: None

PATIENT
  Age: 56 Year
  Sex: Female
  Weight: 69.4003 kg

DRUGS (2)
  1. DYNACIN [Suspect]
     Indication: PSORIASIS
     Dosage: 100MG DAILY PO
     Route: 048
     Dates: start: 20091001, end: 20091004
  2. DYNACIN [Suspect]
     Indication: SEBORRHOEA
     Dosage: 100MG DAILY PO
     Route: 048
     Dates: start: 20091001, end: 20091004

REACTIONS (1)
  - ADVERSE REACTION [None]
